FAERS Safety Report 13463008 (Version 2)
Quarter: 2017Q2

REPORT INFORMATION
  Report Type: Spontaneous
  Country: US (occurrence: US)
  Receive Date: 20170420
  Receipt Date: 20170510
  Transmission Date: 20170830
  Serious: No
  Sender: FDA-Public Use
  Company Number: US-INCYTE CORPORATION-2017IN002868

PATIENT
  Sex: Male
  Weight: 71.66 kg

DRUGS (1)
  1. JAKAFI [Suspect]
     Active Substance: RUXOLITINIB
     Indication: MYELOFIBROSIS
     Dosage: 10 MG, BID
     Route: 048
     Dates: start: 20170321

REACTIONS (2)
  - Urinary incontinence [Recovered/Resolved]
  - Blood iron decreased [Unknown]

NARRATIVE: CASE EVENT DATE: 2017
